FAERS Safety Report 14817124 (Version 1)
Quarter: 2018Q2

REPORT INFORMATION
  Report Type: Spontaneous
  Country: DE (occurrence: DE)
  Receive Date: 20180426
  Receipt Date: 20180426
  Transmission Date: 20180711
  Serious: Yes (Hospitalization)
  Sender: FDA-Public Use
  Company Number: DE-ASTRAZENECA-2018SE50494

PATIENT
  Age: 74 Year
  Sex: Male

DRUGS (8)
  1. FOLATE SODIUM [Concomitant]
     Active Substance: FOLATE SODIUM
  2. QUETIAPINE. [Suspect]
     Active Substance: QUETIAPINE
     Dosage: 50 MG, 1-0.5-1-0.5
     Route: 048
  3. LACTULOSE. [Concomitant]
     Active Substance: LACTULOSE
     Dosage: 20 MG, 1-0-0-0
  4. SIMVASTATIN. [Concomitant]
     Active Substance: SIMVASTATIN
     Dosage: 40 MG, 0-0-0.5-0
  5. PIPAMPERONE [Suspect]
     Active Substance: PIPAMPERONE
     Dosage: 40 MG, 0-0.5-0.5-0
     Route: 065
  6. FUROSEMIDE, SPIRONOLACTONE [Concomitant]
     Active Substance: FUROSEMIDE
     Dosage: 50|20 MG, TWO TIMES A DAY
  7. PHENPROCOUMON [Concomitant]
     Active Substance: PHENPROCOUMON
     Dosage: 3 MG, 0-0-0.5-0
  8. BISOPROLOL [Concomitant]
     Active Substance: BISOPROLOL
     Dosage: 2.5 MG, 0.5-0-0-0.5

REACTIONS (2)
  - Drug prescribing error [Unknown]
  - Seizure [Unknown]

NARRATIVE: CASE EVENT DATE: 20151004
